FAERS Safety Report 13602195 (Version 1)
Quarter: 2017Q2

REPORT INFORMATION
  Report Type: Spontaneous
  Country: US (occurrence: US)
  Receive Date: 20170601
  Receipt Date: 20170601
  Transmission Date: 20170830
  Serious: Yes (Death, Hospitalization)
  Sender: FDA-Public Use
  Company Number: US-UNICHEM LABORATORIES LIMITED-UCM201705-000156

PATIENT
  Age: 19 Year
  Sex: Male

DRUGS (1)
  1. LAMOTRIGINE. [Suspect]
     Active Substance: LAMOTRIGINE

REACTIONS (14)
  - Rhabdomyolysis [Unknown]
  - Encephalopathy [Unknown]
  - Generalised tonic-clonic seizure [Unknown]
  - Pulse absent [Unknown]
  - Electrocardiogram QRS complex prolonged [Unknown]
  - Toxicity to various agents [Fatal]
  - Atrioventricular block complete [Unknown]
  - Depression [Unknown]
  - Disseminated intravascular coagulation [Unknown]
  - Respiratory arrest [Unknown]
  - Metabolic acidosis [Unknown]
  - Intentional overdose [Fatal]
  - Acute kidney injury [Unknown]
  - Tachycardia [Unknown]
